FAERS Safety Report 20393245 (Version 7)
Quarter: 2023Q1

REPORT INFORMATION
  Report Type: Report from Study
  Country: JP (occurrence: JP)
  Receive Date: 20220128
  Receipt Date: 20230228
  Transmission Date: 20230418
  Serious: Yes (Hospitalization)
  Sender: FDA-Public Use
  Company Number: JP-JNJFOC-20220140292

PATIENT
  Age: 58 Year
  Sex: Male
  Weight: 53 kg

DRUGS (25)
  1. AMIVANTAMAB [Suspect]
     Active Substance: AMIVANTAMAB
     Indication: Non-small cell lung cancer metastatic
     Dosage: MOST RECENT DOSE: 14/JAN/2022
     Route: 042
     Dates: start: 20220113
  2. CARBOPLATIN [Suspect]
     Active Substance: CARBOPLATIN
     Indication: Non-small cell lung cancer metastatic
     Dosage: MOST RECENT DOSE ON 13-JAN-2022
     Route: 042
     Dates: start: 20220113
  3. PEMETREXED [Suspect]
     Active Substance: PEMETREXED
     Indication: Non-small cell lung cancer metastatic
     Dosage: MOST RECENT DOSE ON 13-JAN-2022
     Route: 042
     Dates: start: 20220113
  4. REBAMIPIDE [Concomitant]
     Active Substance: REBAMIPIDE
     Indication: Prophylaxis against gastrointestinal ulcer
     Route: 048
     Dates: start: 20200929, end: 20220112
  5. LOXOPROFEN SODIUM [Concomitant]
     Active Substance: LOXOPROFEN SODIUM
     Indication: Tumour pain
     Route: 048
     Dates: start: 20200929, end: 20220112
  6. DESYREL [Concomitant]
     Active Substance: TRAZODONE HYDROCHLORIDE
     Indication: Insomnia
     Route: 048
     Dates: start: 20211222, end: 20220117
  7. DESYREL [Concomitant]
     Active Substance: TRAZODONE HYDROCHLORIDE
     Dosage: AS NEEDED
     Route: 048
     Dates: start: 20220120
  8. METOCLOPRAMIDE [Concomitant]
     Active Substance: METOCLOPRAMIDE
     Indication: Nausea
     Dosage: AS NEEDED
     Route: 048
     Dates: start: 20220115, end: 20220131
  9. ATARAX-P [HYDROXYZINE HYDROCHLORIDE] [Concomitant]
     Indication: Nausea
     Dosage: AS NEEDED
     Route: 048
     Dates: start: 20220116, end: 20220131
  10. ZYPREXA ZYDIS [Concomitant]
     Active Substance: OLANZAPINE
     Indication: Nausea
     Route: 048
     Dates: start: 20220116, end: 20220117
  11. VITAMEDIN [BENFOTIAMINE;CYANOCOBALAMIN;PYRIDOXINE HYDROCHLORIDE] [Concomitant]
     Indication: Decreased appetite
     Route: 042
     Dates: start: 20220117, end: 20220117
  12. VITAMEDIN [BENFOTIAMINE;CYANOCOBALAMIN;PYRIDOXINE HYDROCHLORIDE] [Concomitant]
     Indication: Gastrointestinal ulcer
     Route: 042
     Dates: start: 20220118
  13. VITAMEDIN [BENFOTIAMINE;CYANOCOBALAMIN;PYRIDOXINE HYDROCHLORIDE] [Concomitant]
     Indication: Decreased appetite
     Route: 042
     Dates: start: 20220118, end: 20220202
  14. VITAMEDIN [BENFOTIAMINE;CYANOCOBALAMIN;PYRIDOXINE HYDROCHLORIDE] [Concomitant]
     Indication: Gastrointestinal ulcer
     Route: 042
     Dates: start: 20220117, end: 20220117
  15. AMLODIPINE BESYLATE [Concomitant]
     Active Substance: AMLODIPINE BESYLATE
     Indication: Hypertension
     Route: 048
     Dates: end: 20220117
  16. VITAMINS NOS [Concomitant]
     Active Substance: VITAMINS
     Indication: Prophylaxis
     Route: 048
     Dates: start: 20220106, end: 20220118
  17. FILGRASTIM [Concomitant]
     Active Substance: FILGRASTIM
     Indication: Neutrophil count decreased
     Route: 058
     Dates: start: 20220120, end: 20220127
  18. POLARAMINE [Concomitant]
     Active Substance: DEXCHLORPHENIRAMINE MALEATE
     Indication: Transfusion reaction
     Route: 042
     Dates: start: 20220121, end: 20220121
  19. POLARAMINE [Concomitant]
     Active Substance: DEXCHLORPHENIRAMINE MALEATE
     Indication: Prophylaxis
     Route: 042
     Dates: start: 20220124, end: 20220124
  20. FAMOTIDINE [Concomitant]
     Active Substance: FAMOTIDINE
     Indication: Transfusion reaction
     Route: 042
     Dates: start: 20220121, end: 20220121
  21. FAMOTIDINE [Concomitant]
     Active Substance: FAMOTIDINE
     Route: 042
     Dates: start: 20220124, end: 20220124
  22. HYDROCORTISONE [Concomitant]
     Active Substance: HYDROCORTISONE
     Indication: Transfusion reaction
     Route: 042
     Dates: start: 20220121, end: 20220121
  23. HYDROCORTISONE [Concomitant]
     Active Substance: HYDROCORTISONE
     Route: 042
     Dates: start: 20220124, end: 20220124
  24. MIRTAZAPINE [Concomitant]
     Active Substance: MIRTAZAPINE
     Indication: Insomnia
     Route: 048
     Dates: start: 20220124
  25. SODIUM CHLORIDE [Concomitant]
     Active Substance: SODIUM CHLORIDE
     Indication: Hyponatraemia
     Route: 042
     Dates: start: 20220125, end: 20220202

REACTIONS (3)
  - Gastrointestinal ulcer [Recovered/Resolved]
  - Platelet count decreased [Recovered/Resolved]
  - Febrile neutropenia [Recovered/Resolved]

NARRATIVE: CASE EVENT DATE: 20220118
